FAERS Safety Report 7981253-X (Version None)
Quarter: 2011Q4

REPORT INFORMATION
  Report Type: 
  Country: None (occurrence: None)
  Receive Date: 20111215
  Receipt Date: 20111213
  Transmission Date: 20120403
  Serious: No
  Sender: FDA-Public Use
  Company Number: US-PFIZER INC-2011303629

PATIENT
  Sex: Male
  Weight: 102 kg

DRUGS (1)
  1. LEVOXYL [Suspect]
     Indication: HYPOTHYROIDISM
     Dosage: UNK, 1X/DAY
     Route: 048
     Dates: start: 20030101

REACTIONS (1)
  - FOREIGN BODY [None]
